FAERS Safety Report 9164463 (Version 3)
Quarter: 2013Q3

REPORT INFORMATION
  Report Type: Spontaneous
  Country: NL (occurrence: None)
  Receive Date: 20130226
  Receipt Date: 20130927
  Transmission Date: 20140515
  Serious: Yes (Hospitalization)
  Sender: FDA-Public Use
  Company Number: SYM-2013-00835

PATIENT
  Age: 69 Year
  Sex: Male

DRUGS (14)
  1. FLUOROURACIL (FLUOROURACIL) [Suspect]
     Indication: COLORECTAL CANCER METASTATIC
     Route: 040
     Dates: start: 20121210, end: 20121210
  2. AFLIBERCEPT (AFLIBERCEPT) SOLUTION FOR INJECTION [Suspect]
     Indication: COLORECTAL CANCER METASTATIC
     Dosage: 315 MG INTRAVENOUS (NOT OTHERWISE SPECIFIED)
     Route: 042
     Dates: start: 201212, end: 20121210
  3. IRINOTECAN (IRINOTECAN) [Suspect]
     Indication: COLORECTAL CANCER METASTATIC
     Dosage: 360 MG, INTRAVENOUS (NOT OTHERWISE SPECIFIED)
     Route: 042
     Dates: start: 20121210, end: 20121210
  4. LEUCOVORIN [Suspect]
     Indication: COLORECTAL CANCER METASTATIC
     Dosage: 805 MG, INTRAVENOUS (NOT OTHERWISE SPECIFIED)
     Route: 042
     Dates: start: 20121210, end: 20121210
  5. LOPERAMIDE (LOPERAMIDE) (LOPERAMIDE) [Concomitant]
  6. SEROTONIN ANTAGONISTS (SEROTONIN ANTAGONISTS) [Concomitant]
  7. PRIMPERAN (METOCLOPRAMIDE HYDROCHLORIDE) (METOCLOPRAMIDE HYDROCHLORIDE) [Concomitant]
  8. BETA BLOCKING AGENTS (BETA BLOCKING AGENTS) [Concomitant]
  9. ASCAL CARDIO (CARBASALATE CALCIUM) CARBASALATE CALCIUM_ [Concomitant]
  10. ANGIOTENSIN II ANTAGONISTS (ANGIOTENSIN 11 ANTAGONISTS, PLAIN) [Concomitant]
  11. PANTOZOL (PANTOPRAZOLE SODIUM SESQUIHYDRATE) (PANTOPRAZOLE SODIUM SESQUIHYDRATE) [Concomitant]
  12. MIDAZOLAM (MIDAZOLAM) (MIDAZOLAM) [Concomitant]
  13. ANALGESICS (ANALGESICS) [Concomitant]
  14. ANTIHYPERTENSIVES AND DIURETICS IN COMBINATION (ANTIHYPERTENSIVES AND DIURETICS IN COMBINATION) [Concomitant]

REACTIONS (5)
  - Diarrhoea [None]
  - Asthenia [None]
  - Dyspnoea [None]
  - Dehydration [None]
  - Decreased appetite [None]
